FAERS Safety Report 22223626 (Version 1)
Quarter: 2023Q2

REPORT INFORMATION
  Report Type: Spontaneous
  Country: CA (occurrence: CA)
  Receive Date: 20230418
  Receipt Date: 20230418
  Transmission Date: 20230722
  Serious: Yes (Hospitalization, Other)
  Sender: FDA-Public Use
  Company Number: CA-AstraZeneca-2023A084551

PATIENT
  Age: 37 Year
  Sex: Female

DRUGS (1)
  1. TRASTUZUMAB DERUXTECAN [Suspect]
     Active Substance: TRASTUZUMAB DERUXTECAN
     Indication: HER2 positive breast cancer
     Dosage: 340 MG, ONCE EVERY 3 WK
     Route: 042

REACTIONS (1)
  - Gait inability [Unknown]
